FAERS Safety Report 14867551 (Version 2)
Quarter: 2018Q3

REPORT INFORMATION
  Report Type: Spontaneous
  Country: FR (occurrence: FR)
  Receive Date: 20180508
  Receipt Date: 20180725
  Transmission Date: 20181010
  Serious: Yes (Hospitalization, Other)
  Sender: FDA-Public Use
  Company Number: PHHY2017FR202905

PATIENT
  Age: 34 Year
  Sex: Female

DRUGS (14)
  1. PARACETAMOL [Suspect]
     Active Substance: ACETAMINOPHEN
     Dosage: 4 G, UNK
     Route: 048
  2. NEFOPAM [Suspect]
     Active Substance: NEFOPAM
     Indication: ANALGESIC THERAPY
     Route: 048
  3. SUFENTANIL [Suspect]
     Active Substance: SUFENTANIL
     Indication: EPIDURAL ANALGESIA
     Dosage: ONE SLOW AND SPLIT INJECTION OF 20ML OF A SOLUTION OF 0.25 MICROG/ML
     Route: 008
  4. KETOPROFENE G GAM [Suspect]
     Active Substance: KETOPROFEN
     Indication: ANALGESIC THERAPY
     Dosage: 50 MG, UNK
     Route: 048
  5. ENOXAPARIN SODIUM. [Suspect]
     Active Substance: ENOXAPARIN SODIUM
     Indication: THROMBOSIS PROPHYLAXIS
     Dosage: 40 MG, QD
     Route: 058
  6. NEFOPAM [Suspect]
     Active Substance: NEFOPAM
     Dosage: 160 MG, QD
     Route: 048
  7. ADRENALIN [Suspect]
     Active Substance: EPINEPHRINE
     Indication: ANAESTHESIA
     Dosage: 15 ML OF LIDOCAINE 20MG/ML WITH ADRENALIN
     Route: 065
  8. PARACETAMOL [Suspect]
     Active Substance: ACETAMINOPHEN
     Indication: ANALGESIC THERAPY
     Dosage: 1 G, UNK
     Route: 048
  9. ACETYLSALICYLIC ACID [Suspect]
     Active Substance: ASPIRIN
     Indication: PRODUCT USED FOR UNKNOWN INDICATION
     Route: 065
  10. KETOPROFENE G GAM [Suspect]
     Active Substance: KETOPROFEN
     Dosage: 200 MG, QD
     Route: 048
  11. ROPIVACAINE HYDROCHLORIDE. [Suspect]
     Active Substance: ROPIVACAINE HYDROCHLORIDE
     Indication: ANAESTHESIA
     Dosage: 15 ML, UNK
     Route: 065
  12. LIDOCAINE. [Suspect]
     Active Substance: LIDOCAINE
     Indication: EPIDURAL ANALGESIA
     Dosage: INJECTION OF 15ML OF A SOLUTION OF 20 MG/ML
     Route: 008
  13. MORPHINE [Suspect]
     Active Substance: MORPHINE
     Indication: ANALGESIC THERAPY
     Route: 008
  14. ROPIVACAINE HYDROCHLORIDE. [Suspect]
     Active Substance: ROPIVACAINE HYDROCHLORIDE
     Indication: EPIDURAL ANALGESIA
     Dosage: ONE SLOW AND SPLIT INJECTION OF 20ML OF A SOLUTION OF 1MG/ML
     Route: 008

REACTIONS (11)
  - Spinal epidural haemorrhage [Recovered/Resolved]
  - Epistaxis [Unknown]
  - Paraesthesia [Recovered/Resolved]
  - Maternal exposure during pregnancy [Unknown]
  - Foetal heart rate abnormal [Recovering/Resolving]
  - Neuropathy peripheral [Recovered/Resolved]
  - Peripheral nerve injury [Recovered/Resolved]
  - Product use issue [Unknown]
  - Gait disturbance [Recovered/Resolved]
  - Live birth [Unknown]
  - Nervous system disorder [Recovering/Resolving]
